FAERS Safety Report 25997169 (Version 1)
Quarter: 2025Q4

REPORT INFORMATION
  Report Type: Spontaneous
  Country: RU (occurrence: RU)
  Receive Date: 20251104
  Receipt Date: 20251104
  Transmission Date: 20260118
  Serious: Yes (Other)
  Sender: VERITY PHARMACEUTICALS INC.
  Company Number: RU-VER-202500011

PATIENT
  Age: 71 Year
  Sex: Male

DRUGS (11)
  1. TRIPTORELIN PAMOATE [Suspect]
     Active Substance: TRIPTORELIN PAMOATE
     Indication: Metastases to bone
     Route: 030
     Dates: start: 202409
  2. TRIPTORELIN PAMOATE [Suspect]
     Active Substance: TRIPTORELIN PAMOATE
     Indication: Metastases to liver
     Route: 030
     Dates: start: 202409
  3. TRIPTORELIN PAMOATE [Suspect]
     Active Substance: TRIPTORELIN PAMOATE
     Indication: Prostate cancer
     Route: 030
     Dates: start: 202409
  4. TRIPTORELIN PAMOATE [Suspect]
     Active Substance: TRIPTORELIN PAMOATE
     Indication: Gleason grading score
     Route: 030
     Dates: start: 202409
  5. ABIRATERONE ACETATE [Suspect]
     Active Substance: ABIRATERONE ACETATE
     Indication: Metastases to bone
     Dosage: INTRAVENOUSLY DRIP 1/21 (6 CYCLES) UP TO JAN-2025
     Route: 048
     Dates: start: 202411
  6. ABIRATERONE ACETATE [Suspect]
     Active Substance: ABIRATERONE ACETATE
     Indication: Metastases to liver
     Dosage: INTRAVENOUSLY DRIP 1/21 (6 CYCLES) UP TO JAN-2025
     Route: 048
     Dates: start: 202411
  7. ABIRATERONE ACETATE [Suspect]
     Active Substance: ABIRATERONE ACETATE
     Indication: Prostate cancer
     Dosage: INTRAVENOUSLY DRIP 1/21 (6 CYCLES) UP TO JAN-2025
     Route: 048
     Dates: start: 202411
  8. DOCETAXEL [Suspect]
     Active Substance: DOCETAXEL
     Indication: Metastases to bone
     Dosage: 75 MILLIGRAM(S)/SQ. METER,??INTRAVENOUSLY DRIP 1/21 (6 CYCLES) UP TO JAN-2025
     Route: 041
     Dates: start: 202409
  9. DOCETAXEL [Suspect]
     Active Substance: DOCETAXEL
     Indication: Metastases to liver
     Dosage: 75 MILLIGRAM(S)/SQ. METER,??INTRAVENOUSLY DRIP 1/21 (6 CYCLES) UP TO JAN-2025
     Route: 041
     Dates: start: 202409
  10. DOCETAXEL [Suspect]
     Active Substance: DOCETAXEL
     Indication: Prostate cancer
     Dosage: 75 MILLIGRAM(S)/SQ. METER,??INTRAVENOUSLY DRIP 1/21 (6 CYCLES) UP TO JAN-2025
     Route: 041
     Dates: start: 202409
  11. PREDNISONE [Concomitant]
     Active Substance: PREDNISONE
     Indication: Product used for unknown indication
     Route: 048

REACTIONS (8)
  - Lymphadenopathy [Unknown]
  - Bronchitis [Unknown]
  - Respiratory tract infection viral [Unknown]
  - Metastases to bone [Unknown]
  - Metastases to lung [Unknown]
  - Metastases to liver [Unknown]
  - Inguinal hernia [Unknown]
  - Osteosclerosis [Unknown]

NARRATIVE: CASE EVENT DATE: 20241114
